FAERS Safety Report 7086347-1 (Version None)
Quarter: 2010Q4

REPORT INFORMATION
  Report Type: 
  Country: None (occurrence: None)
  Receive Date: 20101105
  Receipt Date: 20101027
  Transmission Date: 20110411
  Serious: Yes (Hospitalization)
  Sender: FDA-Public Use
  Company Number: CA-JNJFOC-20101100134

PATIENT
  Sex: Male
  Weight: 81 kg

DRUGS (7)
  1. REMICADE [Suspect]
     Indication: COLITIS ULCERATIVE
     Route: 042
  2. REMICADE [Suspect]
     Route: 042
  3. REMICADE [Suspect]
     Route: 042
  4. POLYETHYLENE GLYCOL [Concomitant]
  5. PREDNISONE [Concomitant]
  6. LANSOPRAZOLE [Concomitant]
  7. SOLU-CORTEF [Concomitant]
     Indication: PREMEDICATION
     Route: 042

REACTIONS (2)
  - ABDOMINAL PAIN [None]
  - RECTAL HAEMORRHAGE [None]
